FAERS Safety Report 13035777 (Version 1)
Quarter: 2016Q4

REPORT INFORMATION
  Report Type: Spontaneous
  Country: US (occurrence: US)
  Receive Date: 20161216
  Receipt Date: 20161216
  Transmission Date: 20170207
  Serious: No
  Sender: FDA-Public Use
  Company Number: US-PFIZER INC-2016573230

PATIENT
  Sex: Male

DRUGS (1)
  1. XELJANZ [Suspect]
     Active Substance: TOFACITINIB CITRATE
     Dosage: 5 MG, UNK

REACTIONS (18)
  - Arthralgia [Unknown]
  - Rheumatoid factor increased [Unknown]
  - Constipation [Unknown]
  - Joint range of motion decreased [Unknown]
  - Gait disturbance [Unknown]
  - Back pain [Unknown]
  - Hypoaesthesia [Unknown]
  - Chest pain [Unknown]
  - Fatigue [Unknown]
  - Joint crepitation [Unknown]
  - Pain [Unknown]
  - Dyspepsia [Unknown]
  - Dysstasia [Unknown]
  - Muscular weakness [Unknown]
  - Pruritus [Unknown]
  - Swelling [Unknown]
  - Musculoskeletal stiffness [Unknown]
  - Oedema peripheral [Unknown]
